FAERS Safety Report 11092505 (Version 1)
Quarter: 2015Q2

REPORT INFORMATION
  Report Type: Spontaneous
  Country: US (occurrence: None)
  Receive Date: 20150505
  Receipt Date: 20150505
  Transmission Date: 20150821
  Serious: Yes (Other)
  Sender: FDA-Public Use
  Company Number: None

PATIENT
  Age: 94 Year
  Sex: Female
  Weight: 47.63 kg

DRUGS (22)
  1. ARTIFICIAL TEARS [Concomitant]
     Active Substance: GLYCERIN\HYPROMELLOSES\POLYETHYLENE GLYCOL 400
  2. BUDESONIDE. [Concomitant]
     Active Substance: BUDESONIDE
  3. NEBULIZER [Concomitant]
     Active Substance: UNSPECIFIED INGREDIENT
  4. CHOLECALCIFEROL (VIT D3) [Concomitant]
  5. POTASSIUM CHLORIDE. [Concomitant]
     Active Substance: POTASSIUM CHLORIDE
  6. DEPEND PROTECTIVE UNDERWEAR [Concomitant]
  7. LACTULOSE. [Concomitant]
     Active Substance: LACTULOSE
  8. MULTIVITS W/MINERALS [Concomitant]
  9. LUBRICATING (PF) OPH OINT [Concomitant]
  10. NUTRITION SUPL BOOST PLUS/CHOCOLATE [Concomitant]
  11. SYRINGE 10-12 ML LUER LOCK TIP [Concomitant]
  12. DONEPEZIL HCL [Suspect]
     Active Substance: DONEPEZIL HYDROCHLORIDE
     Indication: MEMORY IMPAIRMENT
     Dosage: 10 MG 1 PILL AT BEDTIME BY MOUTH
     Route: 048
  13. PROBIOTIC [Concomitant]
     Active Substance: PROBIOTICS NOS
  14. PANTOPRAZOLE [Concomitant]
     Active Substance: PANTOPRAZOLE SODIUM
  15. ACETAMINOPHEN. [Concomitant]
     Active Substance: ACETAMINOPHEN
  16. ALBUTEROL. [Concomitant]
     Active Substance: ALBUTEROL
  17. AEROCHAMBER Z-STAT PLUS [Concomitant]
  18. DIPHENHYDRAMINE HCL [Concomitant]
     Active Substance: DIPHENHYDRAMINE HYDROCHLORIDE
  19. ASPIRIN. [Concomitant]
     Active Substance: ASPIRIN
  20. UNDERPAD [Concomitant]
  21. DOCUSATE [Concomitant]
     Active Substance: DOCUSATE
  22. OMEPRAZOLE. [Concomitant]
     Active Substance: OMEPRAZOLE

REACTIONS (1)
  - Nightmare [None]

NARRATIVE: CASE EVENT DATE: 20150320
